FAERS Safety Report 8221366-0 (Version None)
Quarter: 2012Q1

REPORT INFORMATION
  Report Type: 
  Country: None (occurrence: None)
  Receive Date: 20120320
  Receipt Date: 20120315
  Transmission Date: 20120608
  Serious: Yes (Other)
  Sender: FDA-Public Use
  Company Number: PHHY2012DE023467

PATIENT
  Age: 69 Year
  Sex: Male

DRUGS (4)
  1. TAMSULOSIN HCL [Concomitant]
  2. IBUPROFEN [Concomitant]
  3. LOCHOLEST [Suspect]
     Route: 048
  4. TRAMADOL HYDROCHLORIDE [Concomitant]

REACTIONS (2)
  - RENAL CELL CARCINOMA [None]
  - NIGHT SWEATS [None]
